FAERS Safety Report 4990252-1 (Version None)
Quarter: 2006Q2

REPORT INFORMATION
  Report Type: 
  Country: None (occurrence: None)
  Receive Date: 20060503
  Receipt Date: 20060301
  Transmission Date: 20061013
  Serious: Yes (Other)
  Sender: FDA-Public Use
  Company Number: CA-GLAXOSMITHKLINE-A0596147A

PATIENT
  Age: 59 Year
  Sex: Female

DRUGS (7)
  1. FLOVENT [Suspect]
     Indication: ASTHMA
     Dosage: 1PUFF TWICE PER DAY
     Route: 055
     Dates: start: 20060215
  2. PAROXETINE HCL [Concomitant]
     Indication: DEPRESSION
     Dosage: 20MG PER DAY
     Dates: start: 20031014
  3. SALBUTAMOL [Concomitant]
     Indication: ASTHMA
     Dosage: 2PUFF TWICE PER DAY
     Dates: start: 20011105
  4. SYNTHROID [Concomitant]
     Indication: HYPOTHYROIDISM
     Dosage: .1MG PER DAY
     Dates: start: 20020416
  5. HYDROCHLOROTHIAZIDE [Concomitant]
  6. DIOVAN [Concomitant]
     Indication: HYPERTENSION
     Dosage: 1TAB PER DAY
     Dates: start: 20040824
  7. ALPRAZOLAM [Concomitant]
     Indication: ANXIETY
     Dosage: .25MG AS REQUIRED
     Route: 048
     Dates: start: 20010801

REACTIONS (7)
  - ABDOMINAL PAIN [None]
  - BACK PAIN [None]
  - DYSGEUSIA [None]
  - MUSCULOSKELETAL CHEST PAIN [None]
  - NECK PAIN [None]
  - PHARMACEUTICAL PRODUCT COMPLAINT [None]
  - SHOULDER PAIN [None]
